FAERS Safety Report 10796830 (Version 4)
Quarter: 2015Q4

REPORT INFORMATION
  Report Type: Report from Study
  Country: DE (occurrence: DE)
  Receive Date: 20150216
  Receipt Date: 20151012
  Transmission Date: 20160304
  Serious: Yes (Other)
  Sender: FDA-Public Use
  Company Number: DE-UCBSA-2015003631

PATIENT
  Age: 59 Year
  Sex: Male
  Weight: 68 kg

DRUGS (7)
  1. MESALAZINE [Concomitant]
     Active Substance: MESALAMINE
     Indication: CROHN^S DISEASE
     Dosage: 500 MG, 2X/DAY (BID)
     Route: 048
     Dates: start: 201303
  2. LACOSAMIDE EP [Suspect]
     Active Substance: LACOSAMIDE
     Indication: EPILEPSY
     Dosage: 100/200 MG TWICE DAILY
     Route: 048
     Dates: start: 20120815, end: 2014
  3. RAMIPRIL. [Concomitant]
     Active Substance: RAMIPRIL
     Indication: HYPERTENSION
     Dosage: 5 MG, ONCE DAILY (QD)
     Route: 048
     Dates: start: 20110101
  4. METOPROLOL [Concomitant]
     Active Substance: METOPROLOL
     Indication: HYPERTENSION
     Dosage: 95 MG, ONCE DAILY (QD)
     Route: 048
     Dates: start: 20110701
  5. ASPIRIN. [Concomitant]
     Active Substance: ASPIRIN
     Indication: AORTIC VALVE DISEASE
     Dosage: 100 MG, ONCE DAILY (QD)
     Route: 048
     Dates: start: 20110101
  6. SIMVASTATIN. [Concomitant]
     Active Substance: SIMVASTATIN
     Indication: HYPERLIPIDAEMIA
     Dosage: 20 MG, ONCE DAILY (QD)
     Route: 048
     Dates: start: 20110101
  7. FLORADIX [Concomitant]
     Active Substance: IRON
     Indication: IRON DEFICIENCY
     Dosage: 100 MG, 2X/DAY (BID)
     Route: 048
     Dates: start: 201310

REACTIONS (1)
  - Hepatic enzyme increased [Recovered/Resolved with Sequelae]

NARRATIVE: CASE EVENT DATE: 20140312
